FAERS Safety Report 15022833 (Version 9)
Quarter: 2019Q1

REPORT INFORMATION
  Report Type: Spontaneous
  Country: CA (occurrence: CA)
  Receive Date: 20180618
  Receipt Date: 20190128
  Transmission Date: 20190417
  Serious: Yes (Hospitalization, Other)
  Sender: FDA-Public Use
  Company Number: CA-CELLTRION INC.-2017CA008588

PATIENT

DRUGS (13)
  1. TYLENOL WITH CODEINE [Concomitant]
     Active Substance: ACETAMINOPHEN\CODEINE PHOSPHATE
     Indication: PAIN
     Dosage: UNK
  2. INFLECTRA [Suspect]
     Active Substance: INFLIXIMAB-DYYB
     Indication: CROHN^S DISEASE
     Dosage: 500 MG, EVERY 0, 2, 6 WEEKS, THEN EVERY 8 WEEKS
     Route: 042
     Dates: start: 20170518
  3. PROBIOTICS [Concomitant]
     Active Substance: PROBIOTICS NOS
     Dosage: UNK
  4. SALOFALK [Concomitant]
     Active Substance: MESALAMINE
     Dosage: 1000 MG, DAILY AT BEDTIME (HS)
     Route: 054
  5. INFLECTRA [Suspect]
     Active Substance: INFLIXIMAB-DYYB
     Dosage: 500 MG, Q 0, 2, 6 WEEKS EVERY 8 WEEKS
     Route: 042
     Dates: start: 20180808
  6. INFLECTRA [Suspect]
     Active Substance: INFLIXIMAB-DYYB
     Dosage: 500 MG, Q 0, 2, 6 WEEKS EVERY 8 WEEKS
     Route: 042
     Dates: start: 20181005
  7. INFLECTRA [Suspect]
     Active Substance: INFLIXIMAB-DYYB
     Dosage: 500 MG, EVERY 8 WEEKS
     Route: 042
     Dates: start: 20180209
  8. SALOFALK [Concomitant]
     Active Substance: MESALAMINE
     Dosage: 500 MG, QID
     Route: 048
  9. SALOFALK [Concomitant]
     Active Substance: MESALAMINE
     Dosage: 500 MG, FOUR TIMES A DAY
     Route: 048
  10. INFLECTRA [Suspect]
     Active Substance: INFLIXIMAB-DYYB
     Dosage: 500 MG, EVERY 0, 2, 6 WEEKS, THEN EVERY 8 WEEKS
     Route: 042
     Dates: start: 20171201
  11. INFLECTRA [Suspect]
     Active Substance: INFLIXIMAB-DYYB
     Dosage: 500 MG, Q 0, 2, 6 WEEKS EVERY 8 WEEKS
     Route: 042
     Dates: start: 20181127, end: 20181127
  12. INFLECTRA [Suspect]
     Active Substance: INFLIXIMAB-DYYB
     Dosage: 500 MG, EVERY 8 WEEKS
     Route: 042
     Dates: start: 20180404
  13. INFLECTRA [Suspect]
     Active Substance: INFLIXIMAB-DYYB
     Dosage: 500 MG, Q 0, 2, 6 WEEKS EVERY 8 WEEKS
     Route: 042
     Dates: start: 20180613, end: 20180613

REACTIONS (16)
  - Dizziness [Not Recovered/Not Resolved]
  - Product use issue [Unknown]
  - Condition aggravated [Unknown]
  - Syncope [Not Recovered/Not Resolved]
  - Flatulence [Recovered/Resolved]
  - Hyperhidrosis [Not Recovered/Not Resolved]
  - Blood pressure fluctuation [Unknown]
  - Arthralgia [Unknown]
  - Diverticulitis [Unknown]
  - Malaise [Not Recovered/Not Resolved]
  - Weight decreased [Unknown]
  - Flushing [Not Recovered/Not Resolved]
  - Abdominal pain [Not Recovered/Not Resolved]
  - Weight increased [Unknown]
  - Condition aggravated [Not Recovered/Not Resolved]
  - Diarrhoea [Recovered/Resolved]

NARRATIVE: CASE EVENT DATE: 20180209
